FAERS Safety Report 5820634-7 (Version None)
Quarter: 2008Q3

REPORT INFORMATION
  Report Type: 
  Country: None (occurrence: None)
  Receive Date: 20080724
  Receipt Date: 20071212
  Transmission Date: 20090109
  Serious: No
  Sender: FDA-Public Use
  Company Number: A0699368A

PATIENT
  Sex: Female

DRUGS (2)
  1. AVANDIA [Suspect]
     Indication: DRUG USE FOR UNKNOWN INDICATION
     Dates: start: 20010101, end: 20061016
  2. AVANDARYL [Suspect]
     Indication: DRUG USE FOR UNKNOWN INDICATION
     Dates: start: 20010101, end: 20061016

REACTIONS (3)
  - DISABILITY [None]
  - INJURY [None]
  - NONSPECIFIC REACTION [None]
